FAERS Safety Report 5716623-3 (Version None)
Quarter: 2008Q2

REPORT INFORMATION
  Report Type: 
  Country: None (occurrence: None)
  Receive Date: 20080424
  Receipt Date: 20080416
  Transmission Date: 20081010
  Serious: Yes (Hospitalization)
  Sender: FDA-Public Use
  Company Number: US-KINGPHARMUSA00001-K200800440

PATIENT

DRUGS (12)
  1. ALTACE [Suspect]
     Route: 048
  2. OFLOCET                            /00731801/ [Suspect]
     Indication: PERITONITIS SCLEROSING
     Dosage: UNK, UNK
     Route: 048
     Dates: start: 20080125, end: 20080126
  3. NEORECORMON [Suspect]
     Indication: ANAEMIA
     Dosage: 5000 IU, QD
     Route: 058
     Dates: start: 20030901, end: 20080101
  4. AMLOR [Suspect]
     Route: 048
  5. TENORMIN [Suspect]
     Route: 048
  6. VANCOMYCIN [Suspect]
     Indication: PERITONITIS SCLEROSING
     Dosage: UNK, UNK
     Route: 042
     Dates: start: 20080127, end: 20080219
  7. TIENAM [Suspect]
     Indication: PERITONITIS SCLEROSING
     Dates: start: 20080130, end: 20080219
  8. TAMOXIFEN CITRATE [Suspect]
     Dosage: 20 MG, QD
     Route: 048
     Dates: start: 20080219, end: 20080303
  9. SPECIAFOLDINE [Concomitant]
  10. RENAGEL                            /01459902/ [Concomitant]
     Route: 048
  11. KAYEXALATE [Concomitant]
  12. CALCIDIA [Concomitant]

REACTIONS (2)
  - APLASTIC ANAEMIA [None]
  - PERITONITIS SCLEROSING [None]
